FAERS Safety Report 17272313 (Version 17)
Quarter: 2021Q2

REPORT INFORMATION
  Report Type: Report from Study
  Country: FR (occurrence: FR)
  Receive Date: 20200115
  Receipt Date: 20210630
  Transmission Date: 20210716
  Serious: Yes (Hospitalization)
  Sender: FDA-Public Use
  Company Number: FR-ROCHE-2519286

PATIENT
  Age: 56 Year
  Sex: Male
  Weight: 114 kg

DRUGS (25)
  1. SKENAN [Concomitant]
     Active Substance: MORPHINE SULFATE
     Route: 048
     Dates: start: 20191204, end: 20200117
  2. CANDESARTAN. [Concomitant]
     Active Substance: CANDESARTAN
     Indication: HYPERTENSION
     Route: 048
     Dates: start: 20200218
  3. COBIMETINIB. [Suspect]
     Active Substance: COBIMETINIB
     Indication: MALIGNANT MELANOMA
  4. ATEZOLIZUMAB. [Suspect]
     Active Substance: ATEZOLIZUMAB
     Indication: MALIGNANT MELANOMA
  5. LOXEN (FRANCE) [Concomitant]
     Active Substance: NICARDIPINE HYDROCHLORIDE
     Indication: SYSTEMIC IMMUNE ACTIVATION
     Route: 048
     Dates: start: 20200108, end: 20200109
  6. IBUPROFENE [Concomitant]
     Active Substance: IBUPROFEN
     Indication: INFLUENZA
     Dates: start: 20210118, end: 20210120
  7. DAFALGAN [Concomitant]
     Active Substance: ACETAMINOPHEN
     Indication: HEADACHE
     Route: 048
     Dates: start: 20201104, end: 20201104
  8. DAFALGAN [Concomitant]
     Active Substance: ACETAMINOPHEN
     Route: 048
     Dates: start: 20201111, end: 20201111
  9. CICALFATE [Concomitant]
     Indication: PHOTOSENSITIVITY REACTION
     Route: 061
     Dates: start: 20200701, end: 20200724
  10. CICALFATE [Concomitant]
     Indication: DRY SKIN
  11. COBIMETINIB. [Suspect]
     Active Substance: COBIMETINIB
     Indication: METASTASES TO CENTRAL NERVOUS SYSTEM
     Dosage: 60 MG (THREE TABLETS OF 20 MG EACH)?DATE OF LAST DOSE (60 MG)OF COBIMETINIB PRIOR TO AE ONSET: 10/DE
     Route: 048
     Dates: start: 20191130
  12. IBUPROFENE [Concomitant]
     Active Substance: IBUPROFEN
     Indication: PYREXIA
     Route: 048
     Dates: start: 20191122, end: 2019
  13. OXYNORM [Concomitant]
     Active Substance: OXYCODONE HYDROCHLORIDE
     Indication: SYSTEMIC IMMUNE ACTIVATION
     Route: 048
     Dates: start: 20200107, end: 20200113
  14. VEMURAFENIB. [Suspect]
     Active Substance: VEMURAFENIB
     Indication: MALIGNANT MELANOMA
  15. SKENAN [Concomitant]
     Active Substance: MORPHINE SULFATE
     Dosage: 25/NOV/2019 PAINS OF THE LEFT INGUINAL REGION LOWER BACK AND IRRADIATION
     Route: 048
     Dates: start: 20191126
  16. FORLAX [Concomitant]
     Active Substance: POLYETHYLENE GLYCOL 4000
     Indication: CONSTIPATION
     Dosage: 1 UNIT
     Route: 048
     Dates: start: 20191213
  17. ATEZOLIZUMAB. [Suspect]
     Active Substance: ATEZOLIZUMAB
     Indication: METASTASES TO CENTRAL NERVOUS SYSTEM
     Dosage: DATE OF LAST DOSE (840MG) OF ATEZOLIZUMAB PRIOR TO SAE ONSET: 26/DEC/2019
     Route: 041
     Dates: start: 20191226
  18. VEMURAFENIB. [Suspect]
     Active Substance: VEMURAFENIB
     Indication: METASTASES TO CENTRAL NERVOUS SYSTEM
     Dosage: 960 MG (FOUR 240 MG TABLETS)?DATE OF LAST DOSE (660 MG)OF VEMURAFENIB PRIOR TO AE ONSET: 10/DEC/2019
     Route: 048
     Dates: start: 20191130
  19. MOVICOL [Concomitant]
     Active Substance: POLYETHYLENE GLYCOL 3350\POTASSIUM CHLORIDE\SODIUM BICARBONATE\SODIUM CHLORIDE
     Route: 048
     Dates: start: 20200103, end: 20200217
  20. SKENAN [Concomitant]
     Active Substance: MORPHINE SULFATE
     Dosage: 25/NOV/2019 PAINS OF THE LEFT INGUINAL REGION LOWER BACK AND IRRADIATION
     Route: 048
     Dates: start: 20200117
  21. MOVICOL [Concomitant]
     Active Substance: POLYETHYLENE GLYCOL 3350\POTASSIUM CHLORIDE\SODIUM BICARBONATE\SODIUM CHLORIDE
     Indication: CONSTIPATION
     Route: 048
     Dates: start: 20200107
  22. MORINGA [Concomitant]
     Dates: start: 20200831
  23. ACTISKENAN [Concomitant]
     Active Substance: MORPHINE SULFATE
     Dosage: 25/NOV/2019 PAINS OF THE LEFT INGUINAL REGION LOWER BACK AND IRRADIATION
     Route: 048
     Dates: start: 20191126
  24. PETROLATUM. [Concomitant]
     Active Substance: PETROLATUM
     Route: 048
     Dates: start: 20191213
  25. CICALFATE [Concomitant]
     Indication: XEROSIS

REACTIONS (2)
  - Serous retinal detachment [Recovered/Resolved]
  - Pancytopenia [Recovered/Resolved]

NARRATIVE: CASE EVENT DATE: 20191211
